FAERS Safety Report 13148028 (Version 1)
Quarter: 2017Q1

REPORT INFORMATION
  Report Type: Spontaneous
  Country: US (occurrence: US)
  Receive Date: 20170120
  Receipt Date: 20170120
  Transmission Date: 20170428
  Serious: No
  Sender: FDA-Public Use
  Company Number: None

PATIENT
  Age: 57 Year
  Sex: Female
  Weight: 99 kg

DRUGS (11)
  1. ASPIRIN. [Concomitant]
     Active Substance: ASPIRIN
  2. CALCIUM +D [Concomitant]
     Active Substance: CALCIUM\VITAMIN D
  3. VITAMIN B COMPLEX [Concomitant]
     Active Substance: CYANOCOBALAMIN\DEXPANTHENOL\NIACINAMIDE\PYRIDOXINE HYDROCHLORIDE\RIBOFLAVIN 5^-PHOSPHATE SODIUM\THIAMINE HYDROCHLORIDE\VITAMIN B COMPLEX
  4. GABAPENTIN. [Suspect]
     Active Substance: GABAPENTIN
     Indication: NEURALGIA
     Dosage: ?          QUANTITY:3 CAPSULE(S);?
     Route: 048
     Dates: start: 20170112, end: 20170119
  5. LISINOPRIL. [Concomitant]
     Active Substance: LISINOPRIL
  6. SIMVASTATIN. [Concomitant]
     Active Substance: SIMVASTATIN
  7. METFORMIN [Concomitant]
     Active Substance: METFORMIN HYDROCHLORIDE
  8. VITAMIN C [Concomitant]
     Active Substance: ASCORBIC ACID
  9. PANTOPRAZOLE [Concomitant]
     Active Substance: PANTOPRAZOLE SODIUM
  10. GLYBRRIDE [Concomitant]
  11. IRON [Concomitant]
     Active Substance: IRON

REACTIONS (1)
  - Headache [None]

NARRATIVE: CASE EVENT DATE: 20170112
